FAERS Safety Report 9918843 (Version 1)
Quarter: 2014Q1

REPORT INFORMATION
  Report Type: Spontaneous
  Country: FR (occurrence: FR)
  Receive Date: 20140224
  Receipt Date: 20140224
  Transmission Date: 20141002
  Serious: Yes (Hospitalization)
  Sender: FDA-Public Use
  Company Number: FR-ROCHE-1352068

PATIENT
  Age: 49 Year
  Sex: Female

DRUGS (4)
  1. APRANAX [Suspect]
     Indication: NECK PAIN
     Route: 048
     Dates: start: 20131112, end: 20131120
  2. VAXIGRIP [Suspect]
     Indication: PRODUCT USED FOR UNKNOWN INDICATION
     Route: 058
     Dates: start: 20131112, end: 20131112
  3. PARIET [Suspect]
     Indication: NECK PAIN
     Route: 048
     Dates: start: 20131112, end: 20131122
  4. MIOREL (FRANCE) [Suspect]
     Indication: NECK PAIN
     Route: 048
     Dates: start: 20131112, end: 20131120

REACTIONS (1)
  - Rash maculo-papular [Recovered/Resolved]
